FAERS Safety Report 10348067 (Version 1)
Quarter: 2014Q3

REPORT INFORMATION
  Report Type: Spontaneous
  Country: US (occurrence: None)
  Receive Date: 20140723
  Receipt Date: 20140723
  Transmission Date: 20150326
  Serious: Yes (Other)
  Sender: FDA-Public Use
  Company Number: VAL_03228_2014

PATIENT
  Sex: Female

DRUGS (2)
  1. PARLODEL [Suspect]
     Active Substance: BROMOCRIPTINE MESYLATE
     Indication: HYPOTHALAMO-PITUITARY DISORDER
     Dosage: DF
     Dates: start: 1995, end: 2013
  2. BROMOCRIPTINE [Suspect]
     Active Substance: BROMOCRIPTINE
     Indication: HYPOTHALAMO-PITUITARY DISORDER
     Dosage: DF

REACTIONS (6)
  - Immunodeficiency [None]
  - Muscle contractions involuntary [None]
  - Viral infection [None]
  - Respiratory tract infection [None]
  - Peripheral swelling [None]
  - Burning sensation [None]
